FAERS Safety Report 17491164 (Version 1)
Quarter: 2020Q1

REPORT INFORMATION
  Report Type: Spontaneous
  Country: US (occurrence: US)
  Receive Date: 20200303
  Receipt Date: 20200303
  Transmission Date: 20200409
  Serious: No
  Sender: FDA-Public Use
  Company Number: US-SA-2020SA053812

PATIENT
  Sex: Female

DRUGS (4)
  1. RIFADIN [Suspect]
     Active Substance: RIFAMPIN
  2. LORATADINE. [Concomitant]
     Active Substance: LORATADINE
  3. FLONASE ALLERGY RELIEF [Concomitant]
     Active Substance: FLUTICASONE PROPIONATE
  4. XELJANZ [Concomitant]
     Active Substance: TOFACITINIB CITRATE
     Indication: RHEUMATOID ARTHRITIS
     Dosage: UNK, QD
     Route: 048
     Dates: start: 201905

REACTIONS (1)
  - Hypersensitivity [Unknown]
